FAERS Safety Report 10039186 (Version 3)
Quarter: 2014Q4

REPORT INFORMATION
  Report Type: Spontaneous
  Country: DE (occurrence: DE)
  Receive Date: 20140326
  Receipt Date: 20141031
  Transmission Date: 20150528
  Serious: Yes (Other)
  Sender: FDA-Public Use
  Company Number: DE-JNJFOC-20140311173

PATIENT
  Age: 71 Year
  Sex: Male
  Weight: 180 kg

DRUGS (5)
  1. XARELTO [Suspect]
     Active Substance: RIVAROXABAN
     Indication: PRODUCT USED FOR UNKNOWN INDICATION
     Route: 048
     Dates: start: 201403
  2. XARELTO [Suspect]
     Active Substance: RIVAROXABAN
     Indication: PRODUCT USED FOR UNKNOWN INDICATION
     Route: 048
     Dates: start: 201310
  3. IRBESARTAN. [Concomitant]
     Active Substance: IRBESARTAN
     Route: 065
  4. METHIZOL [Concomitant]
     Active Substance: METHIMAZOLE
     Route: 065
  5. NEBIVOLOL [Concomitant]
     Active Substance: NEBIVOLOL
     Route: 065

REACTIONS (8)
  - Rash macular [Unknown]
  - Gamma-glutamyltransferase increased [Recovering/Resolving]
  - Myalgia [Recovering/Resolving]
  - Muscle swelling [Recovering/Resolving]
  - Angiodermatitis [Recovering/Resolving]
  - Vasculitis [Unknown]
  - Skin disorder [Recovering/Resolving]
  - Petechiae [Recovering/Resolving]

NARRATIVE: CASE EVENT DATE: 20131106
